FAERS Safety Report 21896893 (Version 2)
Quarter: 2023Q1

REPORT INFORMATION
  Report Type: Other
  Country: JP (occurrence: JP)
  Receive Date: 20230123
  Receipt Date: 20230127
  Transmission Date: 20230418
  Serious: Yes (Other)
  Sender: FDA-Public Use
  Company Number: JP-CHUGAI-2023001367

PATIENT
  Age: 59 Year
  Sex: Female
  Weight: 56 kg

DRUGS (2)
  1. ATEZOLIZUMAB [Suspect]
     Active Substance: ATEZOLIZUMAB
     Indication: Triple negative breast cancer
     Dosage: 840 MILLIGRAM
     Route: 041
     Dates: start: 20221117
  2. PACLITAXEL [Suspect]
     Active Substance: PACLITAXEL
     Indication: Triple negative breast cancer
     Dosage: 100 MILLIGRAM/SQ. METER
     Route: 041
     Dates: start: 20221117

REACTIONS (10)
  - Neutropenia [Recovered/Resolved]
  - Nail disorder [Unknown]
  - Nausea [Not Recovered/Not Resolved]
  - Neuropathy peripheral [Recovered/Resolved]
  - Diarrhoea [Recovered/Resolved]
  - Malaise [Unknown]
  - Alopecia [Unknown]
  - Constipation [Recovered/Resolved]
  - Dysgeusia [Unknown]
  - Pain [Not Recovered/Not Resolved]

NARRATIVE: CASE EVENT DATE: 20221117
